FAERS Safety Report 10080519 (Version 2)
Quarter: 2014Q2

REPORT INFORMATION
  Report Type: Spontaneous
  Country: GB (occurrence: GB)
  Receive Date: 20140416
  Receipt Date: 20140610
  Transmission Date: 20141212
  Serious: Yes (Hospitalization)
  Sender: FDA-Public Use
  Company Number: GB-ROCHE-1382386

PATIENT
  Sex: Female

DRUGS (1)
  1. NUTROPIN AQ [Suspect]
     Indication: PRODUCT USED FOR UNKNOWN INDICATION
     Route: 058

REACTIONS (6)
  - Adrenocortical insufficiency acute [Not Recovered/Not Resolved]
  - Cerebrovascular accident [Unknown]
  - Aphasia [Unknown]
  - Depressed level of consciousness [Unknown]
  - Incorrect route of drug administration [Unknown]
  - Exposure via direct contact [Unknown]
